FAERS Safety Report 22097606 (Version 7)
Quarter: 2024Q2

REPORT INFORMATION
  Report Type: Spontaneous
  Country: US (occurrence: US)
  Receive Date: 20230315
  Receipt Date: 20240517
  Transmission Date: 20240717
  Serious: No
  Sender: FDA-Public Use
  Company Number: US-PFIZER INC-PV202300017407

PATIENT
  Age: 58 Year
  Sex: Female

DRUGS (1)
  1. IBRANCE [Suspect]
     Active Substance: PALBOCICLIB
     Indication: Breast cancer female
     Dosage: ONCE DAILY FOR 21 DAYS THEN 7 DAYS OFF
     Route: 048
     Dates: start: 20230125

REACTIONS (5)
  - Illness [Unknown]
  - Memory impairment [Unknown]
  - Neoplasm progression [Not Recovered/Not Resolved]
  - Bradyphrenia [Unknown]
  - Influenza [Unknown]

NARRATIVE: CASE EVENT DATE: 20230531
